FAERS Safety Report 20052800 (Version 1)
Quarter: 2021Q4

REPORT INFORMATION
  Report Type: Spontaneous
  Country: US (occurrence: US)
  Receive Date: 20211110
  Receipt Date: 20211110
  Transmission Date: 20220303
  Serious: No
  Sender: FDA-Public Use
  Company Number: US-CELGENE-USA-20211100620

PATIENT
  Sex: Male
  Weight: 103.97 kg

DRUGS (13)
  1. REVLIMID [Suspect]
     Active Substance: LENALIDOMIDE
     Indication: Plasma cell myeloma
     Dosage: 25 MILLIGRAM
     Route: 048
     Dates: start: 20200606
  2. REVLIMID [Suspect]
     Active Substance: LENALIDOMIDE
     Dosage: 20 MILLIGRAM
     Route: 048
     Dates: start: 202010
  3. REVLIMID [Suspect]
     Active Substance: LENALIDOMIDE
     Dosage: 15 MILLIGRAM
     Route: 048
     Dates: start: 202101
  4. FL PR [Concomitant]
     Indication: Product used for unknown indication
     Route: 065
  5. FLUOROURACIL [Concomitant]
     Active Substance: FLUOROURACIL
     Indication: Product used for unknown indication
     Route: 048
  6. FAR [Concomitant]
     Indication: Product used for unknown indication
     Route: 048
  7. EL [Concomitant]
     Indication: Product used for unknown indication
     Route: 048
  8. SO [Concomitant]
     Indication: Product used for unknown indication
     Route: 048
  9. JA [Concomitant]
     Indication: Product used for unknown indication
     Route: 048
  10. ME ER GA [Concomitant]
     Indication: Product used for unknown indication
     Route: 065
  11. FLO ALL RE [Concomitant]
     Indication: Product used for unknown indication
     Route: 065
  12. VE HC [Concomitant]
     Indication: Product used for unknown indication
     Route: 048
  13. ACY [Concomitant]
     Indication: Product used for unknown indication
     Route: 048

REACTIONS (1)
  - Fatigue [Unknown]
